FAERS Safety Report 15749513 (Version 1)
Quarter: 2018Q4

REPORT INFORMATION
  Report Type: Spontaneous
  Country: DE (occurrence: DE)
  Receive Date: 20181221
  Receipt Date: 20181221
  Transmission Date: 20190205
  Serious: Yes (Hospitalization)
  Sender: FDA-Public Use
  Company Number: DE-ACCORD-096928

PATIENT
  Age: 5 Year
  Sex: Male
  Weight: 34 kg

DRUGS (8)
  1. HYDROCORTISONE. [Concomitant]
     Active Substance: HYDROCORTISONE
     Dosage: DOSAGE FORM: UNSPECIFIED, 5-2.5-2.5
     Route: 065
  2. LEVOTHYROXINE. [Concomitant]
     Active Substance: LEVOTHYROXINE
     Dosage: DOSAGE FORM: UNSPECIFIED
     Route: 065
  3. CIRCADIN [Concomitant]
     Active Substance: MELATONIN
     Dosage: DOSAGE FORM: UNSPECIFIED
     Route: 065
  4. CLOBAZAM. [Suspect]
     Active Substance: CLOBAZAM
     Indication: EPILEPSY
     Dosage: DOSAGE FORM: UNSPECIFIED, 3-0-8
     Route: 048
  5. SULTIAME [Suspect]
     Active Substance: SULTHIAME
     Indication: EPILEPSY
     Dosage: DOSAGE FORM: UNSPECIFIED
     Route: 048
  6. TOPIRAMATE. [Suspect]
     Active Substance: TOPIRAMATE
     Indication: EPILEPSY
     Dosage: DAILY DOSE: 240 MG MILLIGRAM(S) EVERY DAY
     Route: 048
  7. SALBUTAMOL [Suspect]
     Active Substance: ALBUTEROL
     Indication: EPILEPSY
     Dosage: DOSAGE FORM: UNSPECIFIED
     Route: 065
  8. VALPROIC ACID. [Suspect]
     Active Substance: VALPROIC ACID
     Indication: EPILEPSY
     Dosage: DAILY DOSE: 825 MG MILLIGRAM(S) EVERY DAY
     Route: 048

REACTIONS (4)
  - Disturbance in attention [Recovered/Resolved]
  - Bronchitis [Recovering/Resolving]
  - Epilepsy [Recovered/Resolved]
  - Drug intolerance [Unknown]

NARRATIVE: CASE EVENT DATE: 20160703
